FAERS Safety Report 12770118 (Version 2)
Quarter: 2016Q3

REPORT INFORMATION
  Report Type: Spontaneous
  Country: US (occurrence: US)
  Receive Date: 20160922
  Receipt Date: 20160927
  Transmission Date: 20161109
  Serious: No
  Sender: FDA-Public Use
  Company Number: US-PFIZER INC-2016439047

PATIENT
  Age: 79 Year
  Sex: Female

DRUGS (9)
  1. CALCIUM CARBONATE-VITAMIN D3 [Concomitant]
     Dosage: UNK
  2. ACETAMINOPHEN. [Concomitant]
     Active Substance: ACETAMINOPHEN
     Dosage: UNK
  3. ASPIRIN. [Concomitant]
     Active Substance: ASPIRIN
     Dosage: UNK
  4. AMARYL [Concomitant]
     Active Substance: GLIMEPIRIDE
     Dosage: UNK
  5. IBRANCE [Suspect]
     Active Substance: PALBOCICLIB
     Indication: BREAST CANCER FEMALE
     Dosage: 125 MG, DAILY
     Dates: start: 20160907
  6. FASLODEX [Concomitant]
     Active Substance: FULVESTRANT
     Dosage: UNK
  7. FISH OIL [Concomitant]
     Active Substance: FISH OIL
     Dosage: UNK
  8. LIPITOR [Concomitant]
     Active Substance: ATORVASTATIN CALCIUM
     Dosage: UNK
  9. XANAX [Concomitant]
     Active Substance: ALPRAZOLAM
     Dosage: UNK

REACTIONS (2)
  - Constipation [Unknown]
  - Initial insomnia [Not Recovered/Not Resolved]

NARRATIVE: CASE EVENT DATE: 201609
